FAERS Safety Report 5394024-8 (Version None)
Quarter: 2007Q3

REPORT INFORMATION
  Report Type: 
  Country: None (occurrence: None)
  Receive Date: 20070723
  Receipt Date: 20070124
  Transmission Date: 20080115
  Serious: No
  Sender: FDA-Public Use
  Company Number: A0636894A

PATIENT
  Age: 75 Year
  Sex: Female

DRUGS (4)
  1. AVANDIA [Suspect]
     Dosage: 4MG TWICE PER DAY
     Route: 048
     Dates: start: 20061020
  2. BYETTA [Suspect]
     Route: 058
  3. GLYBURIDE [Concomitant]
  4. DIOVAN HCT [Concomitant]

REACTIONS (5)
  - ANOREXIA [None]
  - FLUID RETENTION [None]
  - HYPOGEUSIA [None]
  - INJECTION SITE BRUISING [None]
  - WEIGHT DECREASED [None]
